FAERS Safety Report 9115055 (Version 1)
Quarter: 2013Q1

REPORT INFORMATION
  Report Type: Spontaneous
  Country: US (occurrence: None)
  Receive Date: 20130220
  Receipt Date: 20130220
  Transmission Date: 20140127
  Serious: Yes (Hospitalization, Other)
  Sender: FDA-Public Use
  Company Number: None

PATIENT
  Age: 61 Year
  Sex: Male
  Weight: 100.5 kg

DRUGS (1)
  1. HEPARIN [Suspect]
     Dosage: 2400  UNITS   PER HOUR   IV?10/12/2011  THRU   10/12/2011
     Route: 042
     Dates: start: 20111012, end: 20111012

REACTIONS (5)
  - Hypotension [None]
  - Haemorrhage [None]
  - Unresponsive to stimuli [None]
  - Cardiac arrest [None]
  - Cardiac tamponade [None]
